FAERS Safety Report 16996419 (Version 2)
Quarter: 2019Q4

REPORT INFORMATION
  Report Type: Report from Study
  Country: CA (occurrence: CA)
  Receive Date: 20191105
  Receipt Date: 20191219
  Transmission Date: 20200122
  Serious: Yes (Other)
  Sender: FDA-Public Use
  Company Number: CA-NALPROPION PHARMACEUTICALS INC.-2019-008952

PATIENT

DRUGS (5)
  1. CONTRAVE [Suspect]
     Active Substance: BUPROPION HYDROCHLORIDE\NALTREXONE HYDROCHLORIDE
     Indication: WEIGHT CONTROL
     Dosage: 1 DOSAGE FORMS
     Route: 048
     Dates: start: 20190902, end: 20190908
  2. CONTRAVE [Suspect]
     Active Substance: BUPROPION HYDROCHLORIDE\NALTREXONE HYDROCHLORIDE
     Dosage: STOP DATE: APPROXIMATELY 05/OCT/2019
     Route: 048
     Dates: start: 20190923, end: 201910
  3. CONTRAVE [Suspect]
     Active Substance: BUPROPION HYDROCHLORIDE\NALTREXONE HYDROCHLORIDE
     Dosage: 3 DOSAGE FORMS
     Route: 048
     Dates: start: 20190916, end: 20190922
  4. CONTRAVE [Suspect]
     Active Substance: BUPROPION HYDROCHLORIDE\NALTREXONE HYDROCHLORIDE
     Dosage: 2 DOSAGE FORMS
     Route: 048
     Dates: start: 20190909, end: 20190915
  5. CONTRAVE [Suspect]
     Active Substance: BUPROPION HYDROCHLORIDE\NALTREXONE HYDROCHLORIDE
     Dosage: START DATE: APPROX 06/OCT/2019 (STRENGTH: 8 MG/90 MG), 1 TABLET IN MORNING AND 1 TABLET IN NIGHT
     Route: 048
     Dates: start: 201910

REACTIONS (5)
  - Hypophagia [Unknown]
  - Oral pain [Unknown]
  - Oral surgery [Unknown]
  - Memory impairment [Unknown]
  - Drug titration error [Unknown]

NARRATIVE: CASE EVENT DATE: 2019
